FAERS Safety Report 4371693-2 (Version None)
Quarter: 2004Q2

REPORT INFORMATION
  Report Type: 
  Country: None (occurrence: None)
  Receive Date: 20040602
  Receipt Date: 20040519
  Transmission Date: 20050107
  Serious: Yes (Other)
  Sender: FDA-Public Use
  Company Number: 002#4#2004-00082

PATIENT
  Age: 69 Year
  Sex: Male

DRUGS (3)
  1. CHLORPHENIRAMINE MALEATE AND PHENYLPROPANOLAMINE HCL [Suspect]
     Indication: NASOPHARYNGITIS
     Dosage: MG, 1 ONCE; ORAL
     Route: 048
     Dates: start: 20031231, end: 20031231
  2. TAMSULOSIN-HYDROCHLORIDE [Concomitant]
  3. SAW-PALMETTO [Concomitant]

REACTIONS (6)
  - BENIGN PROSTATIC HYPERPLASIA [None]
  - CONDITION AGGRAVATED [None]
  - DYSURIA [None]
  - MEDICATION ERROR [None]
  - PHARMACEUTICAL PRODUCT COMPLAINT [None]
  - URINARY RETENTION [None]
